FAERS Safety Report 8588808-2 (Version None)
Quarter: 2012Q3

REPORT INFORMATION
  Report Type: 
  Country: None (occurrence: None)
  Receive Date: 20120813
  Receipt Date: 20120809
  Transmission Date: 20120928
  Serious: Yes (Hospitalization, Other)
  Sender: FDA-Public Use
  Company Number: PHHY2011NL09134

PATIENT
  Sex: Male
  Weight: 70 kg

DRUGS (3)
  1. SANDOSTATIN LAR [Suspect]
     Dosage: 30 MG, ONCE PER 4 WEEKS
     Route: 030
  2. SANDOSTATIN LAR [Suspect]
     Dosage: 20 MG, EVERY 4 WEEKS
     Route: 030
     Dates: start: 20101012
  3. SANDOSTATIN LAR [Suspect]
     Indication: PANCREATIC NEUROENDOCRINE TUMOUR
     Dosage: 30 MG, ONCE PER 4 WEEKS
     Route: 030
     Dates: start: 20090201

REACTIONS (5)
  - ABDOMINAL PAIN [None]
  - HEPATIC FUNCTION ABNORMAL [None]
  - CHOLELITHIASIS [None]
  - DIARRHOEA [None]
  - CONSTIPATION [None]
